FAERS Safety Report 5608694-X (Version None)
Quarter: 2008Q1

REPORT INFORMATION
  Report Type: 
  Country: None (occurrence: None)
  Receive Date: 20080131
  Receipt Date: 20080124
  Transmission Date: 20080703
  Serious: Yes (Other)
  Sender: FDA-Public Use
  Company Number: FR-PFIZER INC-2008007903

PATIENT
  Sex: Male

DRUGS (6)
  1. TAHOR [Suspect]
     Route: 048
  2. ELISOR [Suspect]
     Route: 048
  3. ELISOR [Suspect]
     Route: 048
  4. VASTEN [Suspect]
     Route: 048
  5. ZOCOR [Suspect]
     Route: 048
  6. LIPANTHYL [Suspect]
     Route: 048

REACTIONS (2)
  - MUSCLE SPASMS [None]
  - TENDONITIS [None]
